FAERS Safety Report 16413587 (Version 2)
Quarter: 2020Q3

REPORT INFORMATION
  Report Type: Other
  Country: US (occurrence: US)
  Receive Date: 20190611
  Receipt Date: 20200806
  Transmission Date: 20201102
  Serious: Yes (Other)
  Sender: FDA-Public Use
  Company Number: US-ROCHE-2332471

PATIENT
  Sex: Female
  Weight: 70.37 kg

DRUGS (4)
  1. CANNABIS [Concomitant]
     Active Substance: CANNABIS SATIVA SUBSP. INDICA TOP
  2. CBD OIL [Concomitant]
     Active Substance: CANNABIDIOL\HERBALS
  3. OCREVUS [Suspect]
     Active Substance: OCRELIZUMAB
     Indication: RELAPSING MULTIPLE SCLEROSIS
     Route: 042
     Dates: start: 201703
  4. OCREVUS [Suspect]
     Active Substance: OCRELIZUMAB
     Route: 042
     Dates: start: 20181228

REACTIONS (5)
  - Peripheral swelling [Not Recovered/Not Resolved]
  - Urinary tract infection [Not Recovered/Not Resolved]
  - Sputum discoloured [Recovered/Resolved]
  - Nephrolithiasis [Recovered/Resolved]
  - Limb discomfort [Not Recovered/Not Resolved]
